FAERS Safety Report 8828655 (Version 2)
Quarter: 2012Q4

REPORT INFORMATION
  Report Type: 
  Country: US (occurrence: US)
  Receive Date: 20121005
  Receipt Date: 20121114
  Transmission Date: 20130627
  Serious: Yes (Other)
  Sender: FDA-Public Use
  Company Number: US-BAYER-2012-102559

PATIENT
  Age: 43 Year
  Sex: Female
  Weight: 87.98 kg

DRUGS (5)
  1. MIRENA [Suspect]
     Indication: CONTRACEPTION
     Dosage: 20 mcg/24hr, CONT
     Route: 015
     Dates: start: 20120824, end: 20120917
  2. XANAX [Concomitant]
     Dosage: 1 mg, UNK
  3. IBUPROFEN [Concomitant]
     Dosage: 600 mg, UNK
  4. VIODINE [Concomitant]
  5. T-TI TABS [Concomitant]

REACTIONS (2)
  - Uterine perforation [Recovered/Resolved]
  - Device difficult to use [None]
